FAERS Safety Report 16787067 (Version 1)
Quarter: 2019Q3

REPORT INFORMATION
  Report Type: Spontaneous
  Country: US (occurrence: US)
  Receive Date: 20190909
  Receipt Date: 20190909
  Transmission Date: 20191005
  Serious: No
  Sender: FDA-Public Use
  Company Number: US-SA-2019SA245016

PATIENT
  Sex: Male

DRUGS (4)
  1. VALACYCLOVIR [Concomitant]
     Active Substance: VALACYCLOVIR HYDROCHLORIDE
  2. DUPIXENT [Suspect]
     Active Substance: DUPILUMAB
     Indication: DERMATITIS ATOPIC
     Dosage: 300 MG, QOW
     Route: 058
  3. MUPIROCIN. [Concomitant]
     Active Substance: MUPIROCIN
  4. METHYLPHENIDAT [Concomitant]
     Active Substance: METHYLPHENIDATE

REACTIONS (1)
  - Injection site irritation [Not Recovered/Not Resolved]
